FAERS Safety Report 6805597-X (Version None)
Quarter: 2010Q2

REPORT INFORMATION
  Report Type: 
  Country: None (occurrence: None)
  Receive Date: 20100628
  Receipt Date: 20080107
  Transmission Date: 20101027
  Serious: No
  Sender: FDA-Public Use
  Company Number: US-PFIZER INC-2008000337

PATIENT
  Sex: Female
  Weight: 59.87 kg

DRUGS (5)
  1. XALATAN [Suspect]
     Indication: GLAUCOMA
     Dates: start: 20050101
  2. XALATAN [Interacting]
     Indication: NERVE INJURY
  3. ALPHAGAN [Interacting]
  4. COSOPT [Interacting]
  5. ACETYLSALICYLIC ACID [Concomitant]

REACTIONS (5)
  - BACK PAIN [None]
  - DRUG INEFFECTIVE [None]
  - DRUG INTERACTION [None]
  - MIDDLE INSOMNIA [None]
  - PAIN [None]
